FAERS Safety Report 11813484 (Version 1)
Quarter: 2015Q4

REPORT INFORMATION
  Report Type: Spontaneous
  Country: US (occurrence: US)
  Receive Date: 20151209
  Receipt Date: 20151209
  Transmission Date: 20160305
  Serious: No
  Sender: FDA-Public Use
  Company Number: US-BAYER-2015-483804

PATIENT
  Age: 36 Year
  Sex: Female

DRUGS (1)
  1. SKYLA [Suspect]
     Active Substance: LEVONORGESTREL
     Dosage: 14 MCG/24HR, CONT
     Route: 015
     Dates: start: 2013, end: 20151130

REACTIONS (3)
  - Device expulsion [None]
  - Abdominal pain lower [None]
  - Vaginal haemorrhage [None]

NARRATIVE: CASE EVENT DATE: 20151130
